FAERS Safety Report 12700932 (Version 1)
Quarter: 2016Q3

REPORT INFORMATION
  Report Type: Spontaneous
  Country: US (occurrence: None)
  Receive Date: 20160830
  Receipt Date: 20160830
  Transmission Date: 20161109
  Serious: Yes (Other)
  Sender: FDA-Public Use
  Company Number: None

PATIENT
  Age: 67 Year
  Sex: Female
  Weight: 48.99 kg

DRUGS (12)
  1. VITAMIN A [Concomitant]
     Active Substance: VITAMIN A
  2. VITAMIN D3 [Concomitant]
     Active Substance: CHOLECALCIFEROL
  3. CARDIO-PLUS 2080 [Concomitant]
  4. ZINC [Concomitant]
     Active Substance: ZINC\ZINC CHLORIDE
  5. ACETYL-L-CARNITINE [Concomitant]
  6. MAGNESIUM [Concomitant]
     Active Substance: MAGNESIUM
  7. SERTRALINE [Concomitant]
     Active Substance: SERTRALINE HYDROCHLORIDE
  8. CALCIUM [Concomitant]
     Active Substance: CALCIUM
  9. PROGESTERONE 50MG, 50 MG [Suspect]
     Active Substance: PROGESTERONE
     Indication: PROGESTERONE DECREASED
     Route: 048
     Dates: start: 20160809, end: 20160826
  10. SUPER OMEGA 3 [Concomitant]
  11. MEGA-B 100 [Concomitant]
  12. COQ10 [Concomitant]
     Active Substance: UBIDECARENONE

REACTIONS (3)
  - Vomiting [None]
  - Headache [None]
  - Chest pain [None]

NARRATIVE: CASE EVENT DATE: 20160809
